FAERS Safety Report 5465409-6 (Version None)
Quarter: 2007Q3

REPORT INFORMATION
  Report Type: 
  Country: None (occurrence: None)
  Receive Date: 20070924
  Receipt Date: 20070914
  Transmission Date: 20080115
  Serious: Yes (Other)
  Sender: FDA-Public Use
  Company Number: US-JNJFOC-20070903119

PATIENT
  Sex: Female
  Weight: 87.09 kg

DRUGS (10)
  1. REMICADE [Suspect]
     Route: 042
  2. REMICADE [Suspect]
     Indication: PSORIATIC ARTHROPATHY
     Route: 042
  3. LEVOTHYROXINE SODIUM [Concomitant]
  4. PREMARIN [Concomitant]
  5. ALLOPURINOL [Concomitant]
  6. DIOVAN [Concomitant]
  7. METFORMIN [Concomitant]
  8. GLYBURIDE [Concomitant]
  9. TRIAMPTERINE [Concomitant]
  10. JANUVIA [Concomitant]

REACTIONS (2)
  - GLYCOSYLATED HAEMOGLOBIN INCREASED [None]
  - PAIN [None]
